FAERS Safety Report 5803808-0 (Version None)
Quarter: 2008Q3

REPORT INFORMATION
  Report Type: 
  Country: None (occurrence: None)
  Receive Date: 20080708
  Receipt Date: 20080627
  Transmission Date: 20090109
  Serious: Yes (Hospitalization)
  Sender: FDA-Public Use
  Company Number: US-CVT-080039

PATIENT

DRUGS (19)
  1. RANEXA [Suspect]
     Indication: ANGINA PECTORIS
     Dosage: 500 MG, BID
     Route: 048
     Dates: end: 20080301
  2. RANEXA [Suspect]
     Dosage: 1000 MG, BID
     Route: 048
     Dates: start: 20080301
  3. ACETAMINOPHEN AND HYDROCODONE BITARTRATE [Concomitant]
  4. BUMEX [Concomitant]
  5. CALCIUM CARBONATE [Concomitant]
  6. PROZAC [Concomitant]
  7. NEURONTIN [Concomitant]
  8. FLOMAX /01280302/ [Concomitant]
  9. METOPROLOL                         /00376901/ [Concomitant]
  10. INSULIN /00030501/ [Concomitant]
  11. PANTOPRAZOLE SODIUM [Concomitant]
  12. IMDUR [Concomitant]
  13. SPIRONOLACTONE [Concomitant]
  14. METOLAZONE [Concomitant]
  15. LEVOFLOXACIN [Concomitant]
  16. ALLOPURINOL [Concomitant]
  17. NITROGLYCERIN [Concomitant]
  18. COUMADIN [Concomitant]
  19. FUROSEMIDE                         /00032601/ [Concomitant]

REACTIONS (9)
  - ANAEMIA [None]
  - ANGINA PECTORIS [None]
  - DIABETES MELLITUS INADEQUATE CONTROL [None]
  - GASTROINTESTINAL OEDEMA [None]
  - HALLUCINATION [None]
  - RENAL FAILURE ACUTE [None]
  - SUPRAVENTRICULAR TACHYCARDIA [None]
  - THROMBOCYTOPENIA [None]
  - VISUAL IMPAIRMENT [None]
